FAERS Safety Report 6069744-2 (Version None)
Quarter: 2009Q1

REPORT INFORMATION
  Report Type: 
  Country: None (occurrence: None)
  Receive Date: 20090209
  Receipt Date: 20090129
  Transmission Date: 20090719
  Serious: Yes (Other)
  Sender: FDA-Public Use
  Company Number: CA-AMGEN-US124754

PATIENT
  Sex: Female
  Weight: 55 kg

DRUGS (9)
  1. ARANESP [Suspect]
     Indication: RENAL FAILURE CHRONIC
     Route: 058
     Dates: start: 20031029
  2. TACROLIMUS [Concomitant]
  3. CELLCEPT [Concomitant]
  4. CALCITONIN [Concomitant]
  5. PREDNISONE TAB [Concomitant]
  6. IRON [Concomitant]
     Route: 042
  7. IRON [Concomitant]
     Route: 042
  8. IRON [Concomitant]
     Route: 042
  9. IRON [Concomitant]
     Route: 048

REACTIONS (3)
  - ANAEMIA [None]
  - ANTI-ERYTHROPOIETIN ANTIBODY POSITIVE [None]
  - BONE MARROW FAILURE [None]
